FAERS Safety Report 9115804 (Version 1)
Quarter: 2013Q1

REPORT INFORMATION
  Report Type: Report from Study
  Country: US (occurrence: US)
  Receive Date: 20130224
  Receipt Date: 20130224
  Transmission Date: 20140127
  Serious: Yes (Hospitalization, Other)
  Sender: FDA-Public Use
  Company Number: US-BRISTOL-MYERS SQUIBB COMPANY-15953714

PATIENT
  Age: 64 Year
  Sex: Male

DRUGS (3)
  1. IPILIMUMAB [Suspect]
     Indication: PROSTATE CANCER
     Dosage: 188.6MG:11JAN2011,187.4MG:31JAN2011,180.4MG:24FEB2011,182.4MG:18MAR2011
     Route: 042
     Dates: start: 20110111, end: 20110318
  2. LOMOTIL [Concomitant]
  3. LIDOCAINE [Concomitant]
     Dates: start: 20101020

REACTIONS (4)
  - Colitis [Unknown]
  - Diarrhoea [Recovered/Resolved]
  - Renal failure acute [Unknown]
  - Dehydration [Unknown]
